FAERS Safety Report 11895758 (Version 1)
Quarter: 2016Q1

REPORT INFORMATION
  Report Type: Spontaneous
  Country: CA (occurrence: CA)
  Receive Date: 20160107
  Receipt Date: 20160107
  Transmission Date: 20160526
  Serious: Yes (Death)
  Sender: FDA-Public Use
  Company Number: CA-TEVA-622346ACC

PATIENT
  Age: 29 Year
  Sex: Male
  Weight: 121 kg

DRUGS (7)
  1. MORPHINE [Concomitant]
     Active Substance: MORPHINE
  2. QUETIAPINE [Suspect]
     Active Substance: QUETIAPINE
     Indication: PRODUCT USED FOR UNKNOWN INDICATION
     Route: 065
  3. PSEUDOEPHEDRINE [Concomitant]
     Active Substance: PSEUDOEPHEDRINE
  4. COCAINE [Concomitant]
     Active Substance: COCAINE
  5. OXYCODONE [Concomitant]
     Active Substance: OXYCODONE
  6. VENTOLIN [Concomitant]
     Active Substance: ALBUTEROL SULFATE
  7. AZITHROMYCIN ANHYDROUS. [Concomitant]
     Active Substance: AZITHROMYCIN ANHYDROUS

REACTIONS (3)
  - Toxicity to various agents [Fatal]
  - Drug level increased [Fatal]
  - Drug abuse [Fatal]
